FAERS Safety Report 5905983-6 (Version None)
Quarter: 2008Q4

REPORT INFORMATION
  Report Type: 
  Country: None (occurrence: None)
  Receive Date: 20081002
  Receipt Date: 20080929
  Transmission Date: 20090506
  Serious: Yes (Other)
  Sender: FDA-Public Use
  Company Number: FR-ALLERGAN-0812211US

PATIENT
  Sex: Male
  Weight: 19 kg

DRUGS (1)
  1. BOTOX [Suspect]
     Indication: MUSCLE SPASTICITY
     Dosage: 180 UNITS, SINGLE
     Route: 030
     Dates: start: 20080703, end: 20080703

REACTIONS (2)
  - OEDEMA PERIPHERAL [None]
  - POLYARTHRITIS [None]
